FAERS Safety Report 6902018-3 (Version None)
Quarter: 2010Q3

REPORT INFORMATION
  Report Type: 
  Country: None (occurrence: None)
  Receive Date: 20100803
  Receipt Date: 20080411
  Transmission Date: 20110219
  Serious: Yes (Other)
  Sender: FDA-Public Use
  Company Number: US-PFIZER INC-2008032533

PATIENT
  Sex: Male

DRUGS (2)
  1. LYRICA [Suspect]
     Indication: CONVULSION
  2. VICODIN [Concomitant]

REACTIONS (2)
  - DRUG DEPENDENCE [None]
  - SOMNOLENCE [None]
